FAERS Safety Report 11645431 (Version 8)
Quarter: 2017Q2

REPORT INFORMATION
  Report Type: Report from Study
  Country: US (occurrence: US)
  Receive Date: 20151020
  Receipt Date: 20170629
  Transmission Date: 20170829
  Serious: Yes (Death, Hospitalization)
  Sender: FDA-Public Use
  Company Number: US-B.I. PHARMACEUTICALS,INC./RIDGEFIELD-2015-BI-57114BP

PATIENT
  Age: 75 Year
  Sex: Female

DRUGS (2)
  1. OFEV [Suspect]
     Active Substance: NINTEDANIB
     Route: 048
     Dates: start: 20170109
  2. OFEV [Suspect]
     Active Substance: NINTEDANIB
     Indication: IDIOPATHIC PULMONARY FIBROSIS
     Route: 048
     Dates: start: 20150701, end: 20170505

REACTIONS (9)
  - Eating disorder [Unknown]
  - Stress [Unknown]
  - Influenza [Recovered/Resolved]
  - Gastric disorder [Unknown]
  - Idiopathic pulmonary fibrosis [Fatal]
  - Dyspnoea [Unknown]
  - Cough [Unknown]
  - Spinal flattening [Unknown]
  - Back pain [Unknown]

NARRATIVE: CASE EVENT DATE: 20170109
